FAERS Safety Report 6143789-6 (Version None)
Quarter: 2009Q2

REPORT INFORMATION
  Report Type: 
  Country: None (occurrence: None)
  Receive Date: 20090403
  Receipt Date: 20090330
  Transmission Date: 20091009
  Serious: Yes (Hospitalization)
  Sender: FDA-Public Use
  Company Number: PHEH2009US01518

PATIENT
  Sex: Female
  Weight: 48.889 kg

DRUGS (6)
  1. RECLAST [Suspect]
     Indication: OSTEOPOROSIS
     Dosage: 5 MG, ONCE YEARLY
     Dates: start: 20081201
  2. ATENOLOL [Concomitant]
     Dosage: 25 UNK, QD
     Route: 048
  3. SIMVASTATIN [Concomitant]
     Dosage: 40 UNK, QD
     Route: 048
  4. COZAAR [Concomitant]
     Dosage: 50 UNK, QD
     Route: 048
  5. LEVOTHYROXINE SODIUM [Concomitant]
     Dosage: 88 MMOL, UNK
     Route: 048
  6. METFORMIN HCL [Concomitant]
     Dosage: 500 MG, BID
     Route: 048

REACTIONS (4)
  - ARTHRALGIA [None]
  - INFLUENZA LIKE ILLNESS [None]
  - PAIN IN JAW [None]
  - PNEUMONIA [None]
